FAERS Safety Report 6182387-5 (Version None)
Quarter: 2009Q2

REPORT INFORMATION
  Report Type: 
  Country: None (occurrence: None)
  Receive Date: 20090505
  Receipt Date: 20090505
  Transmission Date: 20091009
  Serious: Yes (Other)
  Sender: FDA-Public Use
  Company Number: None

PATIENT
  Age: 39 Year
  Sex: Female
  Weight: 112.0385 kg

DRUGS (1)
  1. EFFEXOR XR [Suspect]
     Indication: DEPRESSION
     Dosage: 150 1 PER DAY PO
     Route: 048
     Dates: start: 20070827, end: 20090429

REACTIONS (3)
  - DRUG WITHDRAWAL SYNDROME [None]
  - MOOD SWINGS [None]
  - SENSORY DISTURBANCE [None]
